FAERS Safety Report 11172961 (Version 2)
Quarter: 2015Q3

REPORT INFORMATION
  Report Type: Spontaneous
  Country: US (occurrence: US)
  Receive Date: 20150608
  Receipt Date: 20150818
  Transmission Date: 20151125
  Serious: Yes (Death, Life-Threatening, Hospitalization, Other)
  Sender: FDA-Public Use
  Company Number: US-009507513-1506USA004028

PATIENT
  Sex: Male
  Weight: 87.5 kg

DRUGS (4)
  1. JANUMET [Suspect]
     Active Substance: METFORMIN HYDROCHLORIDE\SITAGLIPTIN PHOSPHATE
     Dosage: 50/1000 MG, BID
     Route: 048
     Dates: start: 20111228, end: 201205
  2. JANUVIA [Suspect]
     Active Substance: SITAGLIPTIN PHOSPHATE
     Route: 048
  3. JANUMET [Suspect]
     Active Substance: METFORMIN HYDROCHLORIDE\SITAGLIPTIN PHOSPHATE
     Indication: TYPE 2 DIABETES MELLITUS
     Dosage: 50/500 MG BID
     Route: 048
     Dates: start: 20111011, end: 20111228
  4. JENTADUETO [Suspect]
     Active Substance: LINAGLIPTIN\METFORMIN HYDROCHLORIDE
     Indication: TYPE 2 DIABETES MELLITUS
     Dosage: 2.5MG/1000, QD
     Dates: start: 20120131, end: 20130328

REACTIONS (23)
  - Essential hypertension [Unknown]
  - Anxiety [Unknown]
  - Blood glucose increased [Unknown]
  - Renal cyst [Unknown]
  - Inguinal hernia [Unknown]
  - Pleural effusion [Unknown]
  - Metastases to liver [Unknown]
  - Treatment noncompliance [Unknown]
  - Atelectasis [Unknown]
  - Metastases to lung [Unknown]
  - Haemorrhage [Unknown]
  - Constipation [Unknown]
  - Rash papular [Unknown]
  - Adenocarcinoma pancreas [Fatal]
  - Hypercholesterolaemia [Unknown]
  - Hypertriglyceridaemia [Unknown]
  - Anhedonia [Unknown]
  - Asthma [Unknown]
  - Pleural effusion [Unknown]
  - Pulmonary mass [Unknown]
  - Lung disorder [Unknown]
  - Nausea [Unknown]
  - Stress [Unknown]

NARRATIVE: CASE EVENT DATE: 20111228
